FAERS Safety Report 14114397 (Version 1)
Quarter: 2017Q4

REPORT INFORMATION
  Report Type: Spontaneous
  Country: US (occurrence: None)
  Receive Date: 20171023
  Receipt Date: 20171023
  Transmission Date: 20180321
  Serious: Yes (Hospitalization)
  Sender: FDA-Public Use
  Company Number: None

PATIENT
  Age: 74 Year
  Sex: Male

DRUGS (25)
  1. BACTRIM [Concomitant]
     Active Substance: SULFAMETHOXAZOLE\TRIMETHOPRIM
  2. NEURONTIN [Concomitant]
     Active Substance: GABAPENTIN
  3. FUROSEMIDE. [Concomitant]
     Active Substance: FUROSEMIDE
  4. METHADONE [Concomitant]
     Active Substance: METHADONE HYDROCHLORIDE
  5. CELLCEPT [Concomitant]
     Active Substance: MYCOPHENOLATE MOFETIL\MYCOPHENOLATE MOFETIL HYDROCHLORIDE
  6. CYCLOSPORINE. [Concomitant]
     Active Substance: CYCLOSPORINE
  7. FLONASE ALGY SPR [Concomitant]
  8. VITAMIN E [Concomitant]
     Active Substance: .ALPHA.-TOCOPHEROL
  9. CYCLOSPORINE. [Suspect]
     Active Substance: CYCLOSPORINE
     Indication: HEART TRANSPLANT
     Dosage: DOSE AMOUNT - THREE 25MG CAPSULES
     Route: 048
     Dates: start: 20150617
  10. MYCOPHENOLATE [Suspect]
     Active Substance: MYCOPHENOLIC ACID
     Indication: HEART TRANSPLANT
     Dosage: DOSE AMOUNT - TWO 500MG TABLETS?FREQUENCY - TWICE DAILY?ROUTE - ORALLY
     Route: 048
     Dates: start: 20151021
  11. FENOFIBRATE. [Concomitant]
     Active Substance: FENOFIBRATE
  12. AMLODIPINE [Concomitant]
     Active Substance: AMLODIPINE BESYLATE
  13. ASPIRIN ADULT [Concomitant]
  14. METHITEST [Concomitant]
     Active Substance: METHYLTESTOSTERONE
  15. TYLENOL [Concomitant]
     Active Substance: ACETAMINOPHEN
  16. ALBUTEROL. [Concomitant]
     Active Substance: ALBUTEROL
  17. KEPPRA [Suspect]
     Active Substance: LEVETIRACETAM
  18. PEPCID AC [Concomitant]
     Active Substance: FAMOTIDINE
  19. RAPAMUNE [Concomitant]
     Active Substance: SIROLIMUS
  20. SMZ-TMP [Concomitant]
     Active Substance: SULFAMETHOXAZOLE\TRIMETHOPRIM
  21. ZANTAC [Concomitant]
     Active Substance: RANITIDINE HYDROCHLORIDE
  22. ASPIRIN. [Concomitant]
     Active Substance: ASPIRIN
  23. DIOVAN [Concomitant]
     Active Substance: VALSARTAN
  24. DOLOPHINE [Concomitant]
     Active Substance: METHADONE HYDROCHLORIDE
  25. VALIUM [Concomitant]
     Active Substance: DIAZEPAM

REACTIONS (1)
  - Hospitalisation [None]

NARRATIVE: CASE EVENT DATE: 201710
